FAERS Safety Report 9856652 (Version 2)
Quarter: 2014Q1

REPORT INFORMATION
  Report Type: Report from Study
  Country: BR (occurrence: BR)
  Receive Date: 20140130
  Receipt Date: 20140228
  Transmission Date: 20141002
  Serious: Yes (Other)
  Sender: FDA-Public Use
  Company Number: PHHY2014BR010455

PATIENT
  Age: 50 Year
  Sex: Female
  Weight: 65 kg

DRUGS (4)
  1. DIOVAN HCT [Suspect]
     Indication: HYPERTENSION
     Dosage: 1 DF (80/12.5 MG), DAILY
     Route: 048
  2. DIOVAN HCT [Suspect]
     Dosage: 1 DF (160/12.5 MG), DAILY
     Route: 048
  3. DIOVAN HCT [Suspect]
     Dosage: 1 DF (320/12.5 MG), DAILY
     Route: 048
  4. OSCAL D                            /00944201/ [Concomitant]
     Indication: BLOOD CALCIUM ABNORMAL
     Dosage: 2 DF (500 MG), DAILY
     Route: 048

REACTIONS (1)
  - Uterine disorder [Recovered/Resolved]
